FAERS Safety Report 6876045-9 (Version None)
Quarter: 2010Q3

REPORT INFORMATION
  Report Type: 
  Country: None (occurrence: None)
  Receive Date: 20100727
  Receipt Date: 20100723
  Transmission Date: 20110219
  Serious: Yes (Other)
  Sender: FDA-Public Use
  Company Number: CA-MERCK-1007USA02970

PATIENT
  Age: 63 Year
  Sex: Male
  Weight: 86 kg

DRUGS (13)
  1. INVANZ [Suspect]
     Route: 042
  2. ACETAMINOPHEN [Concomitant]
     Route: 065
  3. DOPAMINE HYDROCHLORIDE [Concomitant]
     Route: 042
  4. FENOFIBRATE [Concomitant]
     Route: 065
  5. FENTANYL [Concomitant]
     Route: 042
  6. FUROSEMIDE SODIUM [Concomitant]
     Route: 042
  7. GABAPENTIN [Concomitant]
     Route: 048
  8. HEPARIN SODIUM [Concomitant]
     Route: 058
  9. IPRATROPIUM BROMIDE [Concomitant]
     Route: 055
  10. LABETALOL HYDROCHLORIDE [Concomitant]
     Route: 042
  11. ALBUTEROL [Concomitant]
     Route: 055
  12. THIAMINE [Concomitant]
     Route: 065
  13. VALPROIC ACID [Concomitant]
     Route: 042

REACTIONS (2)
  - DRUG INTERACTION [None]
  - DRUG LEVEL BELOW THERAPEUTIC [None]
